FAERS Safety Report 6062500-0 (Version None)
Quarter: 2009Q1

REPORT INFORMATION
  Report Type: 
  Country: None (occurrence: None)
  Receive Date: 20090202
  Receipt Date: 20090202
  Transmission Date: 20090719
  Serious: Yes (Life-Threatening, Disabling, Other)
  Sender: FDA-Public Use
  Company Number: None

PATIENT
  Age: 18 Year
  Sex: Female
  Weight: 47.6277 kg

DRUGS (1)
  1. TETRACYCLINE HCL [Suspect]
     Indication: ACNE
     Dosage: 250 MG 2 PO 500 MG 2 PO
     Route: 048
     Dates: start: 20081028, end: 20090121

REACTIONS (4)
  - DECREASED APPETITE [None]
  - HUNGER [None]
  - THIRST [None]
  - THIRST DECREASED [None]
